FAERS Safety Report 6390030-5 (Version None)
Quarter: 2009Q4

REPORT INFORMATION
  Report Type: 
  Country: None (occurrence: None)
  Receive Date: 20091006
  Receipt Date: 20091005
  Transmission Date: 20100525
  Serious: No
  Sender: FDA-Public Use
  Company Number: US-ROXANE LABORATORIES, INC.-2009-RO-01029RO

PATIENT
  Age: 88 Year
  Sex: Female

DRUGS (1)
  1. CODEINE [Suspect]
     Indication: PAIN

REACTIONS (1)
  - CONSTIPATION [None]
